FAERS Safety Report 7865435-3 (Version None)
Quarter: 2011Q4

REPORT INFORMATION
  Report Type: 
  Country: None (occurrence: None)
  Receive Date: 20111028
  Receipt Date: 20101228
  Transmission Date: 20120403
  Serious: No
  Sender: FDA-Public Use
  Company Number: US-GLAXOSMITHKLINE-A0901683A

PATIENT
  Age: 67 Year
  Sex: Male

DRUGS (8)
  1. LOSARTAN POTASSIUM [Concomitant]
  2. MUCINEX [Concomitant]
  3. DILTIAX [Concomitant]
  4. CLONIDINE [Concomitant]
  5. ADVAIR DISKUS 100/50 [Suspect]
     Indication: ASTHMA
     Dosage: 1PUFF TWICE PER DAY
     Route: 055
     Dates: start: 20081201
  6. IPRATROPIUM BROMIDE [Concomitant]
  7. FENOFIBRATE [Concomitant]
  8. COMBIVENT [Concomitant]

REACTIONS (3)
  - CHEST PAIN [None]
  - PRODUCT QUALITY ISSUE [None]
  - CHEST DISCOMFORT [None]
